FAERS Safety Report 8781991 (Version 3)
Quarter: 2014Q1

REPORT INFORMATION
  Report Type: Spontaneous
  Country: US (occurrence: US)
  Receive Date: 20120913
  Receipt Date: 20140317
  Transmission Date: 20141002
  Serious: Yes (Other)
  Sender: FDA-Public Use
  Company Number: US-BAYER-2012-094607

PATIENT
  Age: 24 Year
  Sex: Female
  Weight: 61 kg

DRUGS (6)
  1. YAZ [Suspect]
     Indication: ACNE
     Dosage: UNK
     Dates: start: 20060601, end: 200610
  2. YAZ [Suspect]
     Indication: PREMENSTRUAL SYNDROME
  3. YASMIN [Suspect]
     Indication: ACNE
     Dosage: UNK
     Dates: start: 20060601, end: 200610
  4. YASMIN [Suspect]
     Indication: PREMENSTRUAL SYNDROME
  5. ANTI-ASTHMATICS [Concomitant]
  6. ACETAMINOPHEN W/HYDROCODONE [Concomitant]
     Dosage: 5 MG- 500 MG; UNK
     Route: 048
     Dates: start: 20050726, end: 20071113

REACTIONS (9)
  - Cholecystitis chronic [None]
  - Gallbladder disorder [None]
  - Pain [None]
  - Injury [None]
  - General physical health deterioration [None]
  - Anxiety [None]
  - Anhedonia [None]
  - Emotional distress [None]
  - Pain [None]
